FAERS Safety Report 8139545-X (Version None)
Quarter: 2012Q1

REPORT INFORMATION
  Report Type: 
  Country: None (occurrence: None)
  Receive Date: 20120215
  Receipt Date: 20120210
  Transmission Date: 20120608
  Serious: Yes (Hospitalization, Other)
  Sender: FDA-Public Use
  Company Number: US-PFIZER INC-2011305494

PATIENT
  Sex: Male

DRUGS (6)
  1. CHANTIX [Suspect]
     Dosage: 0.5MG/1MG, UNK
     Dates: start: 20090101, end: 20090201
  2. ALPRAZOLAM [Concomitant]
     Indication: ANXIETY
     Dosage: UNK
     Dates: start: 20050101
  3. CHANTIX [Suspect]
     Dosage: 0.5MG/1MG, UNK
     Dates: start: 20080401, end: 20080501
  4. CHANTIX [Suspect]
     Indication: SMOKING CESSATION THERAPY
     Dosage: 0.5MG/1MG
     Dates: start: 20070401, end: 20070601
  5. LEXAPRO [Concomitant]
     Indication: DEPRESSION
     Dosage: UNK
     Dates: start: 19990101
  6. CHANTIX [Suspect]
     Dosage: 0.5MG/1MG, UNK
     Dates: start: 20091201, end: 20100101

REACTIONS (10)
  - PSYCHOTIC DISORDER [None]
  - SUICIDE ATTEMPT [None]
  - DELUSION [None]
  - ABNORMAL BEHAVIOUR [None]
  - MANIA [None]
  - SCHIZOPHRENIA [None]
  - PARANOIA [None]
  - DEPRESSION [None]
  - ANXIETY [None]
  - ABNORMAL DREAMS [None]
